FAERS Safety Report 10363989 (Version 2)
Quarter: 2014Q4

REPORT INFORMATION
  Report Type: Report from Study
  Country: MX (occurrence: MX)
  Receive Date: 20140805
  Receipt Date: 20141204
  Transmission Date: 20150528
  Serious: Yes (Hospitalization)
  Sender: FDA-Public Use
  Company Number: PHHY2014MX095008

PATIENT
  Age: 36 Year
  Sex: Female

DRUGS (4)
  1. NOOTROPIL [Concomitant]
     Active Substance: PIRACETAM
     Indication: DIZZINESS
     Dosage: 0.5 DF, UNK
     Route: 065
     Dates: start: 2013
  2. SERC [Concomitant]
     Active Substance: BETAHISTINE HYDROCHLORIDE
     Indication: DIZZINESS
     Dosage: 1 DF, UNK
     Dates: start: 2012, end: 2013
  3. CORALAN [Concomitant]
     Indication: VERTIGO
     Dosage: 1 DF, DAILY
     Route: 065
     Dates: start: 2013
  4. GILENYA [Suspect]
     Active Substance: FINGOLIMOD HYDROCHLORIDE
     Indication: MULTIPLE SCLEROSIS
     Dosage: 0.5 MG, QD
     Route: 048
     Dates: start: 201105

REACTIONS (7)
  - Feeling abnormal [Not Recovered/Not Resolved]
  - Anxiety [Not Recovered/Not Resolved]
  - Depression [Not Recovered/Not Resolved]
  - Tachycardia [Not Recovered/Not Resolved]
  - Vertigo [Unknown]
  - Agitation [Not Recovered/Not Resolved]
  - Dizziness [Unknown]

NARRATIVE: CASE EVENT DATE: 20140628
